FAERS Safety Report 6228065-5 (Version None)
Quarter: 2009Q2

REPORT INFORMATION
  Report Type: 
  Country: None (occurrence: None)
  Receive Date: 20090612
  Receipt Date: 20090604
  Transmission Date: 20091009
  Serious: Yes (Hospitalization, Other)
  Sender: FDA-Public Use
  Company Number: US-MERCK-0903USA05634

PATIENT
  Age: 51 Year
  Sex: Female

DRUGS (5)
  1. FOSAMAX [Suspect]
     Indication: OSTEOPOROSIS
     Route: 048
     Dates: start: 20040701, end: 20050101
  2. ACTONEL [Suspect]
     Indication: OSTEOPOROSIS
     Route: 048
     Dates: start: 20050801, end: 20060101
  3. ASACOL [Concomitant]
     Indication: COLITIS ULCERATIVE
     Route: 065
  4. DIAZIDE [Concomitant]
     Indication: HYPERTENSION
     Route: 065
  5. PREDNISONE [Concomitant]
     Indication: COLITIS ULCERATIVE
     Route: 065
     Dates: start: 20000101

REACTIONS (11)
  - ARTHRITIS [None]
  - BLOOD CHOLESTEROL INCREASED [None]
  - BONE ATROPHY [None]
  - FAILURE OF IMPLANT [None]
  - INCREASED TENDENCY TO BRUISE [None]
  - INFECTION [None]
  - OSTEONECROSIS [None]
  - RESORPTION BONE INCREASED [None]
  - SPONDYLOARTHROPATHY [None]
  - THYROID DISORDER [None]
  - TOOTH INFECTION [None]
